FAERS Safety Report 10177839 (Version 1)
Quarter: 2014Q2

REPORT INFORMATION
  Report Type: Spontaneous
  Country: US (occurrence: US)
  Receive Date: 20140516
  Receipt Date: 20140516
  Transmission Date: 20141212
  Serious: No
  Sender: FDA-Public Use
  Company Number: US-SA-2013SA134277

PATIENT
  Age: 58 Year
  Sex: Male

DRUGS (2)
  1. APIDRA SOLOSTAR [Suspect]
     Indication: TYPE 1 DIABETES MELLITUS
     Dosage: STARTED 3-4 YEARS AGO?TOOK MORE THAN ONCE A DAY DOSE:32 UNIT(S)
     Route: 058
  2. SOLOSTAR [Concomitant]
     Indication: TYPE 1 DIABETES MELLITUS
     Dosage: STARTED 3-4 YEARS AGO?TOOK MORE THAN ONCE A DAY

REACTIONS (1)
  - Abnormal behaviour [Unknown]
